FAERS Safety Report 15538250 (Version 1)
Quarter: 2018Q4

REPORT INFORMATION
  Report Type: Spontaneous
  Country: IT (occurrence: IT)
  Receive Date: 20181022
  Receipt Date: 20181022
  Transmission Date: 20190205
  Serious: Yes (Hospitalization)
  Sender: FDA-Public Use
  Company Number: IT-PFIZER INC-2018365263

PATIENT
  Age: 60 Year
  Sex: Male

DRUGS (2)
  1. TAVOR (LORAZEPAM) [Suspect]
     Active Substance: LORAZEPAM
     Dosage: 50 MG, TOTAL
     Route: 048
     Dates: start: 20180729, end: 20180729
  2. LEXOTAN [Suspect]
     Active Substance: BROMAZEPAM
     Dosage: 20 ML, TOTAL
     Route: 048
     Dates: start: 20180729, end: 20180729

REACTIONS (4)
  - Somnolence [Recovering/Resolving]
  - Confusional state [Recovering/Resolving]
  - Drug abuse [Recovering/Resolving]
  - Suicide attempt [Recovering/Resolving]

NARRATIVE: CASE EVENT DATE: 20180729
